FAERS Safety Report 18314504 (Version 1)
Quarter: 2020Q3

REPORT INFORMATION
  Report Type: Report from Study
  Country: IT (occurrence: IT)
  Receive Date: 20200925
  Receipt Date: 20200925
  Transmission Date: 20201103
  Serious: Yes (Death)
  Sender: FDA-Public Use
  Company Number: IT-PFIZER INC-2020370014

PATIENT

DRUGS (4)
  1. MITOMYCIN C [Suspect]
     Active Substance: MITOMYCIN
     Indication: GASTRIC CANCER
     Dosage: 10 MG/M2, CYCLIC (DAY 1, EVERY OTHER CYCLE) (REPEATED EVERY 21 DAYS)
     Route: 042
  2. 5?FLUOROURACIL [FLUOROURACIL] [Suspect]
     Active Substance: FLUOROURACIL
     Indication: GASTRIC CANCER
     Dosage: 400 MG/M2, CYCLIC (IV BOLUS DAYS 1 TO 3) (REPEATED EVERY 21 DAYS)
     Route: 042
  3. DOXORUBICIN HCL [Suspect]
     Active Substance: DOXORUBICIN HYDROCHLORIDE
     Indication: GASTRIC CANCER
     Dosage: 40 MG/M2, CYCLIC (DAY 2) (REPEATED EVERY 21 DAYS)
     Route: 042
  4. LEUCOVORIN [FOLINIC ACID] [Suspect]
     Active Substance: LEUCOVORIN
     Indication: GASTRIC CANCER
     Dosage: 200 MG/M2, CYCLIC (IV BOLUS DAYS 1 TO 3) (REPEATED EVERY 21 DAYS)
     Route: 042

REACTIONS (1)
  - Myocardial infarction [Fatal]
